FAERS Safety Report 13640019 (Version 1)
Quarter: 2017Q2

REPORT INFORMATION
  Report Type: Spontaneous
  Country: US (occurrence: US)
  Receive Date: 20170609
  Receipt Date: 20170609
  Transmission Date: 20170830
  Serious: No
  Sender: FDA-Public Use
  Company Number: US-ROCHE-645556

PATIENT
  Age: 50 Year
  Sex: Male

DRUGS (3)
  1. CLONAZEPAM. [Suspect]
     Active Substance: CLONAZEPAM
     Indication: PRODUCT USED FOR UNKNOWN INDICATION
     Route: 065
  2. KLONOPIN [Suspect]
     Active Substance: CLONAZEPAM
     Indication: PANIC REACTION
     Dosage: FORM: WAFER, 0.5 TO 3 WAFERS PER DAY. CO-INDICATION: ANXIETY
     Route: 048
  3. KLONOPIN [Suspect]
     Active Substance: CLONAZEPAM
     Indication: PANIC REACTION
     Dosage: CO-INDICATION: ANXIETY
     Route: 065

REACTIONS (4)
  - Sedation [Not Recovered/Not Resolved]
  - Disturbance in attention [Unknown]
  - Withdrawal syndrome [Unknown]
  - Drug ineffective [Unknown]
